FAERS Safety Report 4945620-0 (Version None)
Quarter: 2006Q1

REPORT INFORMATION
  Report Type: 
  Country: None (occurrence: None)
  Receive Date: 20060117
  Receipt Date: 20050914
  Transmission Date: 20060701
  Serious: Yes (Death, Hospitalization)
  Sender: FDA-Public Use
  Company Number: A03200504292

PATIENT
  Age: 68 Year
  Sex: Female

DRUGS (15)
  1. PLAVIX [Suspect]
     Dosage: 75 MG QD ORAL
     Route: 048
     Dates: start: 19980820
  2. BARACLUDE [Suspect]
     Indication: HEPATITIS B
     Dosage: 0.5 MG QD ORAL
     Route: 048
     Dates: start: 20050712, end: 20050815
  3. FAMOTIDINE [Concomitant]
  4. FORMOTEROL FUMARATE [Concomitant]
  5. CETIRIZINE HYDROCHLORIDE [Concomitant]
  6. DOCUSATE SODIUM [Concomitant]
  7. DILTIAZEM HYDROCHLORIDE [Concomitant]
  8. FUROSEMIDE [Concomitant]
  9. FLUTICASONE PROPIONATE [Concomitant]
  10. GLIPIZIDE [Concomitant]
  11. RISPERIDONE [Concomitant]
  12. ACETYLSALICYLIC ACID SRT [Concomitant]
  13. DOCUSATE SODIUM [Concomitant]
  14. MACROGOL [Concomitant]
  15. LISINOPRIL [Concomitant]

REACTIONS (3)
  - GASTRIC VARICES HAEMORRHAGE [None]
  - OESOPHAGEAL VARICES HAEMORRHAGE [None]
  - PLATELET COUNT DECREASED [None]
